FAERS Safety Report 8345321-5 (Version None)
Quarter: 2012Q2

REPORT INFORMATION
  Report Type: 
  Country: None (occurrence: None)
  Receive Date: 20120508
  Receipt Date: 20120502
  Transmission Date: 20120825
  Serious: Yes (Other)
  Sender: FDA-Public Use
  Company Number: FR-ABBOTT-12P-056-0926009-00

PATIENT
  Age: 14 Year
  Sex: Female

DRUGS (3)
  1. HUMIRA [Suspect]
     Indication: ANKYLOSING SPONDYLITIS
     Dosage: TOTAL DOSE TWO INJECTIONS
     Route: 058
     Dates: start: 20110101, end: 20110101
  2. HUMIRA [Suspect]
     Dates: start: 20110101, end: 20110101
  3. ENBREL [Suspect]
     Indication: ANKYLOSING SPONDYLITIS
     Dates: start: 20110101, end: 20110101

REACTIONS (7)
  - DRUG INEFFECTIVE [None]
  - VERTIGO [None]
  - LOSS OF CONSCIOUSNESS [None]
  - MALAISE [None]
  - PRESYNCOPE [None]
  - RASH PUSTULAR [None]
  - ABDOMINAL PAIN [None]
